FAERS Safety Report 5085919-3 (Version None)
Quarter: 2006Q3

REPORT INFORMATION
  Report Type: 
  Country: None (occurrence: None)
  Receive Date: 20060817
  Receipt Date: 20060731
  Transmission Date: 20061208
  Serious: Yes (Death, Other)
  Sender: FDA-Public Use
  Company Number: 0610007

PATIENT
  Age: 3 Year
  Sex: Male
  Weight: 12 kg

DRUGS (1)
  1. ORFADIN [Suspect]
     Indication: TYROSINAEMIA
     Dosage: 10 MILLIGRAM TWICE DAILY ORAL
     Route: 048
     Dates: start: 20040220, end: 20051221

REACTIONS (1)
  - HEPATIC FAILURE [None]
